FAERS Safety Report 13608998 (Version 1)
Quarter: 2017Q2

REPORT INFORMATION
  Report Type: Spontaneous
  Country: US (occurrence: US)
  Receive Date: 20170602
  Receipt Date: 20170602
  Transmission Date: 20170830
  Serious: No
  Sender: FDA-Public Use
  Company Number: US-LEXICON PHARMACEUTICALS, INC-17-1606-00100

PATIENT
  Sex: Male

DRUGS (17)
  1. HYDROCHLOROTHIAZIDE. [Concomitant]
     Active Substance: HYDROCHLOROTHIAZIDE
  2. AFINITOR [Concomitant]
     Active Substance: EVEROLIMUS
  3. DIGOX [Concomitant]
     Active Substance: DIGOXIN
  4. WARFARIN [Concomitant]
     Active Substance: WARFARIN
  5. MULTIVITAMIN [Concomitant]
     Active Substance: VITAMINS
  6. METOPROLOL. [Concomitant]
     Active Substance: METOPROLOL
  7. MAG OXIDE [Concomitant]
     Active Substance: MAGNESIUM OXIDE
  8. NORCO [Concomitant]
     Active Substance: ACETAMINOPHEN\HYDROCODONE BITARTRATE
  9. TRAZODONE [Concomitant]
     Active Substance: TRAZODONE HYDROCHLORIDE
  10. SANDOVASTATIN IR [Concomitant]
  11. LISINOPRIL. [Concomitant]
     Active Substance: LISINOPRIL
  12. OMEPRAZOLE. [Concomitant]
     Active Substance: OMEPRAZOLE
  13. FUROSEMIDE. [Concomitant]
     Active Substance: FUROSEMIDE
  14. SANDOVASTATIN LAR [Concomitant]
  15. TELOTRISTAT ETHYL [Suspect]
     Active Substance: TELOTRISTAT ETHYL
     Indication: CARCINOID SYNDROME
     Route: 048
     Dates: start: 20170331
  16. DULOXETINE. [Concomitant]
     Active Substance: DULOXETINE
  17. KLONOPIN [Concomitant]
     Active Substance: CLONAZEPAM

REACTIONS (1)
  - Flushing [Unknown]

NARRATIVE: CASE EVENT DATE: 2017
